FAERS Safety Report 4314745-5 (Version None)
Quarter: 2004Q1

REPORT INFORMATION
  Report Type: 
  Country: None (occurrence: None)
  Receive Date: 20040309
  Receipt Date: 20040309
  Transmission Date: 20041129
  Serious: Yes (Death, Hospitalization)
  Sender: FDA-Public Use
  Company Number: None

PATIENT
  Sex: Female
  Weight: 90.7194 kg

DRUGS (2)
  1. MONOPRIL [Suspect]
     Indication: HYPERTENSION
  2. AMOXICILLIN [Concomitant]

REACTIONS (3)
  - ASPHYXIA [None]
  - LARYNGEAL OEDEMA [None]
  - TONGUE OEDEMA [None]
